FAERS Safety Report 5328190-7 (Version None)
Quarter: 2007Q2

REPORT INFORMATION
  Report Type: 
  Country: None (occurrence: None)
  Receive Date: 20070514
  Receipt Date: 20070427
  Transmission Date: 20071010
  Serious: Yes (Hospitalization)
  Sender: FDA-Public Use
  Company Number: T200700483

PATIENT
  Sex: Female

DRUGS (1)
  1. OPTIRAY 160 [Suspect]
     Indication: UROGRAM
     Dosage: SINGLE, INTRAVENOUS
     Route: 042
     Dates: start: 20070416, end: 20070416

REACTIONS (5)
  - DYSAESTHESIA [None]
  - MALAISE [None]
  - PARAESTHESIA [None]
  - RASH [None]
  - SHOCK [None]
